FAERS Safety Report 7085522-X (Version None)
Quarter: 2010Q4

REPORT INFORMATION
  Report Type: 
  Country: None (occurrence: None)
  Receive Date: 20101028
  Receipt Date: 20101014
  Transmission Date: 20110411
  Serious: Yes (Death, Hospitalization)
  Sender: FDA-Public Use
  Company Number: 1000015804

PATIENT
  Age: 79 Year
  Sex: Female

DRUGS (5)
  1. MEMANTINE HCL [Suspect]
     Indication: DEMENTIA ALZHEIMER'S TYPE
     Dosage: 5 MG (5 MG, 1 IN 1 D), ORAL, 20 MG (10 MG, 2 IN 1 D), ORAL
     Route: 048
     Dates: start: 20080429
  2. SPIRONOLACTONE [Concomitant]
  3. CEDRINA (QUETIAPINE) (QUETIAPINE) [Concomitant]
  4. SERTRALINE (SERTRALINE) (SERTRALINE) [Concomitant]
  5. ALDACTAZIDE (ALDACTAZINE A) (ALDACTAZIDE A) [Concomitant]

REACTIONS (4)
  - BLOOD BILIRUBIN INCREASED [None]
  - CHOLELITHIASIS [None]
  - JAUNDICE [None]
  - PANCREATITIS ACUTE [None]
